FAERS Safety Report 10732582 (Version 3)
Quarter: 2015Q1

REPORT INFORMATION
  Report Type: Spontaneous
  Country: FR (occurrence: FR)
  Receive Date: 20150123
  Receipt Date: 20150219
  Transmission Date: 20150721
  Serious: Yes (Hospitalization)
  Sender: FDA-Public Use
  Company Number: FR-ASTRAZENECA-2015SE05224

PATIENT
  Age: 75 Year
  Sex: Male

DRUGS (7)
  1. URBANYL [Suspect]
     Active Substance: CLOBAZAM
     Route: 065
     Dates: start: 201411, end: 20141220
  2. BACTRIM [Suspect]
     Active Substance: SULFAMETHOXAZOLE\TRIMETHOPRIM
     Route: 065
     Dates: start: 20141205, end: 20141211
  3. INEXIUM [Suspect]
     Active Substance: ESOMEPRAZOLE
     Route: 048
     Dates: start: 20141205, end: 20141219
  4. AMLOR [Concomitant]
     Active Substance: AMLODIPINE BESYLATE
     Dates: start: 20141206
  5. CEFAZOLINE [Suspect]
     Active Substance: CEFAZOLIN SODIUM
     Route: 065
     Dates: start: 20141211, end: 20141217
  6. KEPPRA [Suspect]
     Active Substance: LEVETIRACETAM
     Route: 065
     Dates: start: 201411
  7. TRIATEC [Concomitant]
     Active Substance: RAMIPRIL

REACTIONS (2)
  - Dermatosis [Recovered/Resolved]
  - Linear IgA disease [Recovered/Resolved]

NARRATIVE: CASE EVENT DATE: 20141212
